FAERS Safety Report 9559523 (Version 1)
Quarter: 2013Q3

REPORT INFORMATION
  Report Type: Spontaneous
  Country: US (occurrence: None)
  Receive Date: 20130909
  Receipt Date: 20130909
  Transmission Date: 20140515
  Serious: No
  Sender: FDA-Public Use
  Company Number: 370782

PATIENT
  Age: 30 Year
  Sex: Female
  Weight: 99.3 kg

DRUGS (3)
  1. VICTOZA [Suspect]
     Indication: TYPE 1 DIABETES MELLITUS
     Route: 058
     Dates: start: 20130116, end: 20130117
  2. METFORMIN (METFORMIN) [Concomitant]
  3. LEVEMIR (INSULIN DETEMIR) SOLUTION FOR INJECTION [Concomitant]

REACTIONS (1)
  - Pancreatitis [None]
